FAERS Safety Report 21585687 (Version 2)
Quarter: 2022Q4

REPORT INFORMATION
  Report Type: Spontaneous
  Country: US (occurrence: US)
  Receive Date: 20221111
  Receipt Date: 20221208
  Transmission Date: 20230112
  Serious: Yes (Hospitalization, Other)
  Sender: FDA-Public Use
  Company Number: US-PFIZER INC-PV202200099878

PATIENT
  Age: 29 Year
  Sex: Female
  Weight: 121 kg

DRUGS (10)
  1. RITUXIMAB-ABBS [Suspect]
     Active Substance: RITUXIMAB-ABBS
     Indication: Eosinophilic granulomatosis with polyangiitis
     Dosage: UNK
     Route: 042
     Dates: start: 20221001, end: 20221001
  2. PREDNISONE [Suspect]
     Active Substance: PREDNISONE
     Indication: Colitis ulcerative
     Dosage: 70 MG, 1X/DAY (DAILY)
     Dates: start: 2022
  3. PREDNISONE [Suspect]
     Active Substance: PREDNISONE
     Indication: Eosinophilic cystitis
  4. PREDNISONE [Suspect]
     Active Substance: PREDNISONE
     Indication: Eosinophilic granulomatosis with polyangiitis
  5. VEDOLIZUMAB [Concomitant]
     Active Substance: VEDOLIZUMAB
     Indication: Colitis ulcerative
     Dosage: UNK
  6. BENRALIZUMAB [Concomitant]
     Active Substance: BENRALIZUMAB
     Indication: Eosinophilic cystitis
     Dosage: UNK
  7. REMDESIVIR [Concomitant]
     Active Substance: REMDESIVIR
  8. TOCILIZUMAB [Concomitant]
     Active Substance: TOCILIZUMAB
  9. COVID-19 CONVALESCENT PLASMA [Concomitant]
     Active Substance: COVID-19 CONVALESCENT PLASMA
  10. PAXLOVID [Concomitant]
     Active Substance: NIRMATRELVIR\RITONAVIR

REACTIONS (5)
  - Respiratory failure [Unknown]
  - COVID-19 [Not Recovered/Not Resolved]
  - Pyrexia [Unknown]
  - Pain [Unknown]
  - Off label use [Unknown]

NARRATIVE: CASE EVENT DATE: 20220512
